FAERS Safety Report 6111552-8 (Version None)
Quarter: 2009Q1

REPORT INFORMATION
  Report Type: 
  Country: None (occurrence: None)
  Receive Date: 20090311
  Receipt Date: 20090304
  Transmission Date: 20090719
  Serious: Yes (Hospitalization)
  Sender: FDA-Public Use
  Company Number: US-BIOGENIDEC-2008BI022726

PATIENT
  Age: 48 Year
  Sex: Female
  Weight: 136 kg

DRUGS (3)
  1. AVONEX [Suspect]
     Indication: MULTIPLE SCLEROSIS
     Route: 030
     Dates: start: 20080101
  2. AVONEX [Suspect]
     Route: 030
     Dates: start: 20080101
  3. LYRICA [Concomitant]
     Indication: ARTHRALGIA

REACTIONS (3)
  - KNEE ARTHROPLASTY [None]
  - PAIN IN EXTREMITY [None]
  - PROCEDURAL PAIN [None]
